FAERS Safety Report 5110421-X (Version None)
Quarter: 2006Q3

REPORT INFORMATION
  Report Type: 
  Country: None (occurrence: None)
  Receive Date: 20060921
  Receipt Date: 20060215
  Transmission Date: 20061208
  Serious: Yes (Hospitalization, Other)
  Sender: FDA-Public Use
  Company Number: PHHO2006JP02963

PATIENT
  Age: 58 Year
  Sex: Female
  Weight: 50 kg

DRUGS (6)
  1. LOCHOL [Suspect]
     Indication: HYPERCHOLESTEROLAEMIA
     Dosage: 20 MG, QD
     Route: 048
     Dates: start: 20010712
  2. LOCHOL [Suspect]
     Dosage: 30 MG, QD
     Route: 048
     Dates: start: 20010906
  3. LOCHOL [Suspect]
     Dosage: 60 MG, QD
     Route: 048
     Dates: start: 20011004, end: 20050404
  4. CEROCRAL [Concomitant]
     Indication: DIZZINESS
  5. CHOLEBRINE [Concomitant]
  6. ACINON [Concomitant]
     Indication: GASTRITIS
     Dates: end: 20040126

REACTIONS (2)
  - BREAST CANCER [None]
  - TUMOUR EXCISION [None]
